FAERS Safety Report 19876947 (Version 1)
Quarter: 2021Q3

REPORT INFORMATION
  Report Type: Spontaneous
  Country: US (occurrence: US)
  Receive Date: 20210923
  Receipt Date: 20210923
  Transmission Date: 20211014
  Serious: Yes (Other)
  Sender: FDA-Public Use
  Company Number: US-AMGEN-USASP2021143416

PATIENT
  Age: 68 Year
  Sex: Male

DRUGS (2)
  1. REPATHA [Suspect]
     Active Substance: EVOLOCUMAB
     Indication: PRODUCT USED FOR UNKNOWN INDICATION
     Dosage: 140 MILLIGRAM, Q2WK
     Route: 058
     Dates: start: 2021, end: 2021
  2. REPATHA [Suspect]
     Active Substance: EVOLOCUMAB
     Dosage: 140 MILLIGRAM, Q2WK
     Route: 058
     Dates: start: 202109

REACTIONS (10)
  - Weight increased [Unknown]
  - Injection site scab [Unknown]
  - Wrong technique in product usage process [Unknown]
  - Shoulder operation [Unknown]
  - Tremor [Unknown]
  - Lethargy [Unknown]
  - Pain [Unknown]
  - Muscle spasms [Unknown]
  - Foot fracture [Unknown]
  - Malaise [Unknown]

NARRATIVE: CASE EVENT DATE: 2021
